FAERS Safety Report 4302096-4 (Version None)
Quarter: 2004Q1

REPORT INFORMATION
  Report Type: 
  Country: None (occurrence: None)
  Receive Date: 20040220
  Receipt Date: 20040210
  Transmission Date: 20041129
  Serious: Yes (Life-Threatening, Hospitalization)
  Sender: FDA-Public Use
  Company Number: 200410084BCA

PATIENT
  Age: 44 Year
  Sex: Female

DRUGS (4)
  1. CIPRO [Suspect]
     Indication: PYELONEPHRITIS
     Dosage: 500MG, BID, ORAL
     Route: 048
  2. SOTALOL HCL [Concomitant]
  3. DIGOXIN [Concomitant]
  4. WARFARIN [Concomitant]

REACTIONS (4)
  - DIZZINESS [None]
  - ELECTROCARDIOGRAM QT CORRECTED INTERVAL PROLONGED [None]
  - SYNCOPE [None]
  - TORSADE DE POINTES [None]
